FAERS Safety Report 8540912-0 (Version None)
Quarter: 2012Q3

REPORT INFORMATION
  Report Type: 
  Country: None (occurrence: None)
  Receive Date: 20120726
  Receipt Date: 20120722
  Transmission Date: 20120928
  Serious: No
  Sender: FDA-Public Use
  Company Number: US-PFIZER INC-2012177035

PATIENT
  Sex: Female

DRUGS (2)
  1. ADVIL PM [Suspect]
     Indication: INSOMNIA
  2. ADVIL PM [Suspect]
     Indication: NASOPHARYNGITIS
     Dosage: UNK
     Dates: start: 20120701

REACTIONS (1)
  - HYPOAESTHESIA [None]
